FAERS Safety Report 5982270-1 (Version None)
Quarter: 2008Q4

REPORT INFORMATION
  Report Type: 
  Country: None (occurrence: None)
  Receive Date: 20081208
  Receipt Date: 20081204
  Transmission Date: 20090506
  Serious: Yes (Other)
  Sender: FDA-Public Use
  Company Number: B0549322A

PATIENT
  Age: 43 Year
  Sex: Male

DRUGS (2)
  1. REQUIP [Suspect]
     Indication: PARKINSON'S DISEASE
     Dates: start: 20000101
  2. REQUIP [Suspect]
     Route: 065

REACTIONS (6)
  - DEEP BRAIN STIMULATION [None]
  - HYPERSEXUALITY [None]
  - PARKINSONISM [None]
  - PATHOLOGICAL GAMBLING [None]
  - POST PROCEDURAL INFECTION [None]
  - STAPHYLOCOCCAL INFECTION [None]
